FAERS Safety Report 8172466-5 (Version None)
Quarter: 2012Q1

REPORT INFORMATION
  Report Type: 
  Country: None (occurrence: None)
  Receive Date: 20120227
  Receipt Date: 20120227
  Transmission Date: 20120608
  Serious: Yes (Hospitalization)
  Sender: FDA-Public Use
  Company Number: None

PATIENT
  Age: 72 Year
  Sex: Male
  Weight: 134.3 kg

DRUGS (2)
  1. BUMETANIDE [Suspect]
     Indication: HYPERTENSION
     Dosage: 1 MG PO
     Route: 048
     Dates: start: 20111216, end: 20120131
  2. SPIRONOLACTONE [Suspect]
     Indication: HYPERTENSION
     Dosage: MG PO
     Route: 048
     Dates: start: 20111216, end: 20120131

REACTIONS (2)
  - RENAL FAILURE ACUTE [None]
  - HYPERKALAEMIA [None]
